FAERS Safety Report 13858008 (Version 1)
Quarter: 2017Q3

REPORT INFORMATION
  Report Type: Report from Study
  Country: IT (occurrence: IT)
  Receive Date: 20170811
  Receipt Date: 20170811
  Transmission Date: 20171127
  Serious: Yes (Death, Other)
  Sender: FDA-Public Use
  Company Number: IT-TEVA-790214ROM

PATIENT
  Age: 13 Year
  Sex: Male

DRUGS (3)
  1. VORICONAZOLE. [Suspect]
     Active Substance: VORICONAZOLE
     Dosage: 8 MG/KG/DAY
     Route: 065
  2. VORICONAZOLE. [Suspect]
     Active Substance: VORICONAZOLE
     Indication: ASPERGILLUS INFECTION
     Dosage: 12 MG/KG/DAY ON THE FIRST DAY; FOLLOWED BY 8 MG/KG/DAY
     Route: 065
  3. ALLOPURINOL. [Suspect]
     Active Substance: ALLOPURINOL
     Indication: RENAL FAILURE
     Route: 065

REACTIONS (2)
  - Multiple organ dysfunction syndrome [Fatal]
  - Toxic epidermal necrolysis [Fatal]
